FAERS Safety Report 7075771-9 (Version None)
Quarter: 2010Q4

REPORT INFORMATION
  Report Type: 
  Country: None (occurrence: None)
  Receive Date: 20101101
  Receipt Date: 20101021
  Transmission Date: 20110411
  Serious: Yes (Hospitalization)
  Sender: FDA-Public Use
  Company Number: US-BIOGENIDEC-2010BI036368

PATIENT
  Age: 55 Year
  Sex: Female

DRUGS (2)
  1. AVONEX [Suspect]
     Indication: MULTIPLE SCLEROSIS
     Route: 030
     Dates: start: 19970101, end: 19971101
  2. AVONEX [Suspect]
     Route: 030

REACTIONS (8)
  - COGNITIVE DISORDER [None]
  - HYPOAESTHESIA [None]
  - INFECTION [None]
  - LOSS OF CONSCIOUSNESS [None]
  - PAIN [None]
  - PARAESTHESIA [None]
  - SYNCOPE [None]
  - VISUAL IMPAIRMENT [None]
